FAERS Safety Report 8960497 (Version 1)
Quarter: 2012Q4

REPORT INFORMATION
  Report Type: Spontaneous
  Country: US (occurrence: None)
  Receive Date: 20121211
  Receipt Date: 20121211
  Transmission Date: 20130627
  Serious: Yes (Hospitalization, Other)
  Sender: FDA-Public Use
  Company Number: None

PATIENT
  Age: 53 Year
  Sex: Female
  Weight: 62.6 kg

DRUGS (2)
  1. BUPROPION HCL XL [Suspect]
     Indication: DEPRESSION
     Dosage: 300 MG XL   1  PO
     Route: 048
     Dates: start: 20060101, end: 20110901
  2. BUPROPION XL300 WATSON [Suspect]
     Dosage: 300 MG XL  1  PO
     Route: 048
     Dates: start: 20121001, end: 20121201

REACTIONS (6)
  - Product substitution issue [None]
  - Therapeutic response unexpected with drug substitution [None]
  - Depression [None]
  - Convulsion [None]
  - Product quality issue [None]
  - Anger [None]
